FAERS Safety Report 8156696-4 (Version None)
Quarter: 2012Q1

REPORT INFORMATION
  Report Type: 
  Country: None (occurrence: None)
  Receive Date: 20120222
  Receipt Date: 20120216
  Transmission Date: 20120608
  Serious: Yes (Other)
  Sender: FDA-Public Use
  Company Number: CH-BAXTER-2012BH004787

PATIENT
  Age: 46 Year
  Sex: Male

DRUGS (3)
  1. CEFAZOLIN [Suspect]
     Indication: INFECTIOUS PERITONITIS
     Route: 033
  2. PERITONEAL DIALYSIS SOLUTION [Concomitant]
     Indication: PERITONEAL DIALYSIS
     Route: 033
  3. CEFOTAXIME [Concomitant]
     Indication: INFECTIOUS PERITONITIS
     Route: 033

REACTIONS (1)
  - INTERNATIONAL NORMALISED RATIO INCREASED [None]
